FAERS Safety Report 4286055-6 (Version None)
Quarter: 2004Q1

REPORT INFORMATION
  Report Type: 
  Country: None (occurrence: None)
  Receive Date: 20040203
  Receipt Date: 20040129
  Transmission Date: 20041129
  Serious: Yes (Death, Hospitalization)
  Sender: FDA-Public Use
  Company Number: FRWYE544229JAN04

PATIENT
  Sex: Male

DRUGS (5)
  1. EFFEXOR [Suspect]
     Dosage: ORAL
     Route: 048
  2. VALPROATE SODIUM [Suspect]
  3. SULFARLEM (ANETHOLE TRITHIONE) [Suspect]
  4. THERALENE (ALIMEMAZINE TARTRATE) [Suspect]
  5. XANAX [Suspect]

REACTIONS (2)
  - FOETAL DISTRESS SYNDROME [None]
  - MATERNAL DRUGS AFFECTING FOETUS [None]
